FAERS Safety Report 4376674-0 (Version None)
Quarter: 2004Q2

REPORT INFORMATION
  Report Type: 
  Country: None (occurrence: None)
  Receive Date: 20040608
  Receipt Date: 20040526
  Transmission Date: 20050107
  Serious: No
  Sender: FDA-Public Use
  Company Number: 04P-163-0262147-00

PATIENT
  Age: 67 Year
  Sex: Female
  Weight: 56.6996 kg

DRUGS (5)
  1. HUMIRA [Suspect]
     Indication: RHEUMATOID ARTHRITIS
     Dosage: 40 MG, 1 IN 2 WK , SUBCUTANEOUS
     Route: 058
     Dates: start: 20031001, end: 20040524
  2. METHOTREXATE [Concomitant]
  3. IBUPROFEN [Concomitant]
  4. ATENOLOL [Concomitant]
  5. FOLIC ACID [Concomitant]

REACTIONS (3)
  - HEPATIC NEOPLASM MALIGNANT [None]
  - LUNG NEOPLASM MALIGNANT [None]
  - SINUSITIS [None]
